FAERS Safety Report 10187262 (Version 3)
Quarter: 2014Q2

REPORT INFORMATION
  Report Type: Spontaneous
  Country: GB (occurrence: GB)
  Receive Date: 20140522
  Receipt Date: 20140627
  Transmission Date: 20141212
  Serious: Yes (Other)
  Sender: FDA-Public Use
  Company Number: US-ASTRAZENECA-2014SE35123

PATIENT
  Age: 66 Year
  Sex: Female
  Weight: 92.1 kg

DRUGS (7)
  1. CANDESARTAN [Suspect]
     Indication: HYPERTENSION
     Route: 048
     Dates: end: 20131127
  2. CANDESARTAN [Suspect]
     Indication: HYPERTENSION
     Route: 048
  3. CO-AMILOZIDE [Suspect]
     Indication: HYPERTENSION
     Dosage: 2.5/25 MG
     Route: 048
     Dates: start: 20120519, end: 20121023
  4. QVAR [Concomitant]
     Dates: start: 201109
  5. QVAR [Concomitant]
     Dates: start: 201201
  6. FLUCLOXACILLIN [Concomitant]
     Dates: start: 201208
  7. CLOTRIMAZOLE [Concomitant]
     Dates: start: 201209

REACTIONS (12)
  - Muscular weakness [Recovered/Resolved with Sequelae]
  - Fatigue [Recovered/Resolved with Sequelae]
  - Candida infection [Recovered/Resolved with Sequelae]
  - Hypersomnia [Recovered/Resolved with Sequelae]
  - Stress urinary incontinence [Recovered/Resolved with Sequelae]
  - Hyperglycaemia [Recovered/Resolved with Sequelae]
  - Heart rate irregular [Recovered/Resolved with Sequelae]
  - Pruritus genital [Recovered/Resolved with Sequelae]
  - Decreased appetite [Recovered/Resolved with Sequelae]
  - Arthralgia [Recovered/Resolved with Sequelae]
  - Pain in extremity [Recovered/Resolved with Sequelae]
  - Pollakiuria [Recovered/Resolved with Sequelae]
